FAERS Safety Report 25275035 (Version 1)
Quarter: 2025Q2

REPORT INFORMATION
  Report Type: Spontaneous
  Country: CN (occurrence: CN)
  Receive Date: 20250506
  Receipt Date: 20250506
  Transmission Date: 20250717
  Serious: Yes (Other)
  Sender: MYLAN
  Company Number: CN-MYLANLABS-2025M1038026

PATIENT
  Age: 62 Year
  Sex: Female
  Weight: 60 kg

DRUGS (12)
  1. LIPITOR [Suspect]
     Active Substance: ATORVASTATIN CALCIUM
     Indication: Hyperlipidaemia
     Dosage: 20 MILLIGRAM, QD
     Dates: start: 20250408, end: 20250427
  2. LIPITOR [Suspect]
     Active Substance: ATORVASTATIN CALCIUM
     Dosage: 20 MILLIGRAM, QD
     Route: 048
     Dates: start: 20250408, end: 20250427
  3. LIPITOR [Suspect]
     Active Substance: ATORVASTATIN CALCIUM
     Dosage: 20 MILLIGRAM, QD
     Route: 048
     Dates: start: 20250408, end: 20250427
  4. LIPITOR [Suspect]
     Active Substance: ATORVASTATIN CALCIUM
     Dosage: 20 MILLIGRAM, QD
     Dates: start: 20250408, end: 20250427
  5. PERAMIVIR [Suspect]
     Active Substance: PERAMIVIR
     Indication: Pyrexia
     Dosage: 0.3 GRAM, QD
     Dates: start: 20250423, end: 20250425
  6. PERAMIVIR [Suspect]
     Active Substance: PERAMIVIR
     Dosage: 0.3 GRAM, QD
     Route: 042
     Dates: start: 20250423, end: 20250425
  7. PERAMIVIR [Suspect]
     Active Substance: PERAMIVIR
     Dosage: 0.3 GRAM, QD
     Route: 042
     Dates: start: 20250423, end: 20250425
  8. PERAMIVIR [Suspect]
     Active Substance: PERAMIVIR
     Dosage: 0.3 GRAM, QD
     Dates: start: 20250423, end: 20250425
  9. OSELTAMIVIR PHOSPHATE [Suspect]
     Active Substance: OSELTAMIVIR PHOSPHATE
     Indication: Pyrexia
     Dosage: 75 MILLIGRAM, BID
     Dates: start: 20250422, end: 20250425
  10. OSELTAMIVIR PHOSPHATE [Suspect]
     Active Substance: OSELTAMIVIR PHOSPHATE
     Dosage: 75 MILLIGRAM, BID
     Route: 048
     Dates: start: 20250422, end: 20250425
  11. OSELTAMIVIR PHOSPHATE [Suspect]
     Active Substance: OSELTAMIVIR PHOSPHATE
     Dosage: 75 MILLIGRAM, BID
     Route: 048
     Dates: start: 20250422, end: 20250425
  12. OSELTAMIVIR PHOSPHATE [Suspect]
     Active Substance: OSELTAMIVIR PHOSPHATE
     Dosage: 75 MILLIGRAM, BID
     Dates: start: 20250422, end: 20250425

REACTIONS (2)
  - Pruritus [Recovering/Resolving]
  - Rash [Recovering/Resolving]

NARRATIVE: CASE EVENT DATE: 20250425
